FAERS Safety Report 6220880-7 (Version None)
Quarter: 2009Q2

REPORT INFORMATION
  Report Type: 
  Country: None (occurrence: None)
  Receive Date: 20090610
  Receipt Date: 20090527
  Transmission Date: 20091009
  Serious: Yes (Other)
  Sender: FDA-Public Use
  Company Number: IE-PFIZER INC-2009219195

PATIENT

DRUGS (1)
  1. ZYVOX [Suspect]

REACTIONS (3)
  - OROPHARYNGEAL PAIN [None]
  - PARAESTHESIA ORAL [None]
  - SWOLLEN TONGUE [None]
